FAERS Safety Report 7057888-8 (Version None)
Quarter: 2010Q4

REPORT INFORMATION
  Report Type: 
  Country: None (occurrence: None)
  Receive Date: 20101022
  Receipt Date: 20101007
  Transmission Date: 20110411
  Serious: Yes (Hospitalization)
  Sender: FDA-Public Use
  Company Number: US-BAYER-201021612NA

PATIENT
  Age: 38 Year
  Sex: Female

DRUGS (6)
  1. YASMIN [Suspect]
     Indication: PRODUCT USED FOR UNKNOWN INDICATION
     Route: 048
     Dates: start: 20030718, end: 20041117
  2. SYNTHROID [Concomitant]
     Indication: HYPOTHYROIDISM
  3. MACROBID [Concomitant]
     Indication: URINARY TRACT INFECTION
  4. PREVACID [Concomitant]
     Indication: GASTROOESOPHAGEAL REFLUX DISEASE
  5. ZANTAC [Concomitant]
  6. OVCON-35 [Concomitant]
     Dosage: 35 X 1 YEAR

REACTIONS (4)
  - CHEST DISCOMFORT [None]
  - CHEST PAIN [None]
  - DEEP VEIN THROMBOSIS [None]
  - HOT FLUSH [None]
